FAERS Safety Report 15707733 (Version 1)
Quarter: 2018Q4

REPORT INFORMATION
  Report Type: Spontaneous
  Country: US (occurrence: US)
  Receive Date: 20181210
  Receipt Date: 20181210
  Transmission Date: 20190205
  Serious: Yes (Disabling)
  Sender: FDA-Public Use
  Company Number: None

PATIENT
  Age: 44 Year
  Sex: Female
  Weight: 79.2 kg

DRUGS (10)
  1. CORLANOR [Suspect]
     Active Substance: IVABRADINE HYDROCHLORIDE
     Indication: POSTURAL ORTHOSTATIC TACHYCARDIA SYNDROME
     Dosage: ?          QUANTITY:1 TABLET(S);?
     Route: 048
     Dates: start: 20181206, end: 20181210
  2. RISPERIDONE. [Concomitant]
     Active Substance: RISPERIDONE
  3. ZINC. [Concomitant]
     Active Substance: ZINC
  4. VITAMIN C [Concomitant]
     Active Substance: ASCORBIC ACID
  5. DULOXETINE. [Concomitant]
     Active Substance: DULOXETINE
  6. MIDODRINE [Concomitant]
     Active Substance: MIDODRINE
  7. AMBIEN [Concomitant]
     Active Substance: ZOLPIDEM TARTRATE
  8. MULTIVITAMIN [Concomitant]
     Active Substance: VITAMINS
  9. FISH OIL [Concomitant]
     Active Substance: FISH OIL
  10. VYVANSE [Concomitant]
     Active Substance: LISDEXAMFETAMINE DIMESYLATE

REACTIONS (2)
  - Nausea [None]
  - Dizziness [None]

NARRATIVE: CASE EVENT DATE: 20181208
